FAERS Safety Report 7130857-5 (Version None)
Quarter: 2010Q4

REPORT INFORMATION
  Report Type: 
  Country: None (occurrence: None)
  Receive Date: 20101201
  Receipt Date: 20101118
  Transmission Date: 20110411
  Serious: Yes (Other)
  Sender: FDA-Public Use
  Company Number: JP-SHIRE-SPV1-2010-02077

PATIENT
  Age: 77 Year
  Sex: Female

DRUGS (20)
  1. FOSRENOL [Suspect]
     Indication: HYPERPHOSPHATAEMIA
     Dosage: UNK MG, UNK
     Route: 048
     Dates: start: 20091015, end: 20100615
  2. CALCIUM CARBONATE [Concomitant]
     Indication: HYPERPHOSPHATAEMIA
     Dosage: 1 G, UNKNOWN
     Route: 048
     Dates: start: 20070301
  3. CALCIUM CARBONATE [Concomitant]
     Dosage: 2 UNK, UNKNOWN
     Dates: start: 20100715, end: 20100809
  4. CALCIUM CARBONATE [Concomitant]
     Dosage: 3 UNK, UNKNOWN
     Route: 048
     Dates: start: 20100810
  5. ALFAROL [Concomitant]
     Indication: PRODUCT USED FOR UNKNOWN INDICATION
     Dosage: 0.25 UG, UNK
     Route: 048
     Dates: start: 20100831
  6. MUCOSTA [Concomitant]
     Indication: PRODUCT USED FOR UNKNOWN INDICATION
     Dosage: 300 MG, UNKNOWN
     Route: 048
  7. SIGMART [Concomitant]
     Indication: PRODUCT USED FOR UNKNOWN INDICATION
     Dosage: 15 MG, UNKNOWN
     Route: 048
  8. NITOROL [Concomitant]
     Indication: PRODUCT USED FOR UNKNOWN INDICATION
     Dosage: 40 MG, UNKNOWN
     Route: 048
  9. PURSENNID                          /00142207/ [Concomitant]
     Indication: PRODUCT USED FOR UNKNOWN INDICATION
     Dosage: 36 MG, UNKNOWN
     Route: 048
  10. GASTER D [Concomitant]
     Indication: PRODUCT USED FOR UNKNOWN INDICATION
     Dosage: 10 MG, UNKNOWN
     Route: 048
  11. DEPAS [Concomitant]
     Indication: PRODUCT USED FOR UNKNOWN INDICATION
     Dosage: 1 MG, UNKNOWN
     Route: 048
  12. ALOSENN                            /00476901/ [Concomitant]
     Indication: PRODUCT USED FOR UNKNOWN INDICATION
     Dosage: 0.25 UG, UNK
     Route: 048
  13. ALLOZYM [Concomitant]
     Indication: PRODUCT USED FOR UNKNOWN INDICATION
     Dosage: 100 MG, UNKNOWN
     Route: 048
  14. ASPIRIN [Concomitant]
     Indication: PRODUCT USED FOR UNKNOWN INDICATION
     Dosage: 100 MG, UNKNOWN
     Route: 048
  15. VASOLAN                            /00014302/ [Concomitant]
     Indication: PRODUCT USED FOR UNKNOWN INDICATION
     Dosage: 40 MG, UNKNOWN
     Route: 048
  16. PLAVIX [Concomitant]
     Indication: CEREBRAL INFARCTION
     Dosage: 75 MG, UNKNOWN
     Route: 048
  17. ARTIST [Concomitant]
     Indication: CARDIAC FAILURE
     Dosage: 2.5 MG, UNKNOWN
     Route: 048
  18. CHINESE HARB (KANZO-TO) [Concomitant]
     Indication: PRODUCT USED FOR UNKNOWN INDICATION
     Dosage: 2.5 G, UNKNOWN
     Route: 048
  19. WARFARIN [Concomitant]
     Indication: ATRIAL FIBRILLATION
     Dosage: 2.5 MG, UNKNOWN
     Route: 048
  20. NESP [Concomitant]
     Indication: PRODUCT USED FOR UNKNOWN INDICATION
     Dosage: 30 UG, UNK
     Route: 042

REACTIONS (1)
  - ANGINA PECTORIS [None]
